FAERS Safety Report 9375224 (Version 2)
Quarter: 2013Q3

REPORT INFORMATION
  Report Type: Spontaneous
  Country: FR (occurrence: FR)
  Receive Date: 20130628
  Receipt Date: 20130808
  Transmission Date: 20140515
  Serious: Yes (Hospitalization, Other)
  Sender: FDA-Public Use
  Company Number: FR-PFIZER INC-2013188303

PATIENT
  Age: 48 Year
  Sex: Male

DRUGS (17)
  1. NEURONTIN [Suspect]
     Dosage: 500 MG, 3X/DAY
     Route: 048
     Dates: start: 20120721, end: 20120727
  2. LYRICA [Suspect]
     Dosage: 5 MG, 2X/DAY
     Route: 048
     Dates: start: 20120718, end: 20120719
  3. KETAMINE HCL [Suspect]
     Dosage: UNK
     Dates: start: 20120723, end: 20120727
  4. PARACETAMOL [Suspect]
     Dosage: 4 G DAILY
     Route: 048
     Dates: start: 20120628, end: 20120713
  5. MIOREL [Suspect]
     Dosage: UNK
     Dates: start: 20120628, end: 20120728
  6. TRAMADOL HYDROCHLORIDE [Suspect]
     Dosage: 150 MG, 2X/DAY
     Dates: start: 20120711, end: 20120713
  7. INEXIUM [Suspect]
     Dosage: 20MG DAILY
     Dates: start: 20120707, end: 20120713
  8. VOLTARENE LP 75 [Suspect]
     Dosage: 75 MG, 2X/DAY
     Route: 048
     Dates: start: 20120626, end: 20120713
  9. AUGMENTIN [Suspect]
     Dosage: 1 G, 3X/DAY
     Route: 048
     Dates: start: 20120607, end: 20120713
  10. AERIUS [Suspect]
     Dosage: 5 MG, 1X/DAY
     Route: 048
     Dates: start: 20120721, end: 20120727
  11. DOMPERIDONE [Suspect]
     Dosage: UNK
     Route: 048
     Dates: start: 20120726, end: 20120727
  12. VERSATIS 5 PER CENT [Suspect]
     Dosage: UNK
     Route: 062
     Dates: start: 20120726, end: 20120727
  13. SOLUPRED [Suspect]
     Dosage: UNK
     Route: 048
     Dates: start: 20120707, end: 20120713
  14. LOVENOX [Suspect]
     Dosage: 1 DF, 1X/DAY
     Route: 058
     Dates: start: 20120713
  15. SKENAN [Suspect]
     Dosage: 20 MG, 2X/DAY
     Dates: start: 20120713, end: 20120727
  16. ACTISKENAN [Suspect]
     Dosage: 10 MG, SIX TIMES A DAY
     Route: 048
     Dates: start: 20120713, end: 20120727
  17. LAROXYL [Suspect]
     Dosage: 5 GTT, 1X/DAY
     Dates: start: 20120719, end: 20120727

REACTIONS (1)
  - Hepatocellular injury [Recovered/Resolved]
